FAERS Safety Report 13261155 (Version 1)
Quarter: 2017Q1

REPORT INFORMATION
  Report Type: Other
  Country: US (occurrence: US)
  Receive Date: 20170222
  Receipt Date: 20170222
  Transmission Date: 20170428
  Serious: No
  Sender: FDA-Public Use
  Company Number: US-SIGMA-TAU US-2016STPI000841

PATIENT
  Sex: Male

DRUGS (1)
  1. LEVOCARNITINE. [Suspect]
     Active Substance: LEVOCARNITINE
     Indication: CARNITINE DEFICIENCY
     Dosage: 330 MG, UNK
     Route: 048

REACTIONS (5)
  - Decreased appetite [Unknown]
  - Ammonia abnormal [Unknown]
  - Fatigue [Unknown]
  - Nausea [Unknown]
  - Gait disturbance [Unknown]
